FAERS Safety Report 8412366-6 (Version None)
Quarter: 2012Q2

REPORT INFORMATION
  Report Type: 
  Country: None (occurrence: None)
  Receive Date: 20120605
  Receipt Date: 20120517
  Transmission Date: 20120825
  Serious: No
  Sender: FDA-Public Use
  Company Number: US-AMGEN-USASP2012031191

PATIENT
  Age: 76 Year
  Sex: Female

DRUGS (1)
  1. ENBREL [Suspect]
     Indication: RHEUMATOID ARTHRITIS
     Dosage: 50 MG, Q2WK
     Dates: start: 20100922, end: 20120509

REACTIONS (7)
  - RHEUMATOID ARTHRITIS [None]
  - JOINT SWELLING [None]
  - CONDITION AGGRAVATED [None]
  - DEMENTIA [None]
  - EMOTIONAL DISORDER [None]
  - PRURITUS GENERALISED [None]
  - MALAISE [None]
